FAERS Safety Report 13398182 (Version 1)
Quarter: 2017Q2

REPORT INFORMATION
  Report Type: Spontaneous
  Country: US (occurrence: US)
  Receive Date: 20170403
  Receipt Date: 20170403
  Transmission Date: 20170830
  Serious: No
  Sender: FDA-Public Use
  Company Number: US-ELI_LILLY_AND_COMPANY-US201608002762

PATIENT
  Sex: Female

DRUGS (2)
  1. AMBIEN [Concomitant]
     Active Substance: ZOLPIDEM TARTRATE
     Indication: INSOMNIA
     Dosage: 10 MG, UNK
     Route: 048
  2. CYMBALTA [Suspect]
     Active Substance: DULOXETINE HYDROCHLORIDE
     Indication: DEPRESSION
     Dosage: 60 MG, QD
     Route: 048
     Dates: start: 20130827, end: 201409

REACTIONS (22)
  - Headache [Unknown]
  - Insomnia [Unknown]
  - Dysphoria [Unknown]
  - Diarrhoea [Unknown]
  - Dry skin [Unknown]
  - Gastrointestinal tract irritation [Unknown]
  - Agitation [Unknown]
  - Affect lability [Unknown]
  - Anxiety [Unknown]
  - Nightmare [Unknown]
  - Paraesthesia [Unknown]
  - Irritability [Unknown]
  - Nausea [Unknown]
  - Lethargy [Unknown]
  - Pruritus [Unknown]
  - Intentional product misuse [Unknown]
  - Drug withdrawal syndrome [Unknown]
  - Fatigue [Unknown]
  - Sensory disturbance [Unknown]
  - Confusional state [Unknown]
  - Vomiting [Unknown]
  - Hyperhidrosis [Unknown]
